FAERS Safety Report 5812330-7 (Version None)
Quarter: 2008Q3

REPORT INFORMATION
  Report Type: 
  Country: None (occurrence: None)
  Receive Date: 20080716
  Receipt Date: 20080704
  Transmission Date: 20090109
  Serious: Yes (Other)
  Sender: FDA-Public Use
  Company Number: DE-PFIZER INC-2008035030

PATIENT
  Sex: Male

DRUGS (1)
  1. INSPRA [Suspect]
     Indication: HYPERALDOSTERONISM
     Dosage: DAILY DOSE:50MG
     Route: 048

REACTIONS (1)
  - HYPERTENSION [None]
